FAERS Safety Report 11021441 (Version 1)
Quarter: 2015Q2

REPORT INFORMATION
  Report Type: Spontaneous
  Country: US (occurrence: US)
  Receive Date: 20150413
  Receipt Date: 20150413
  Transmission Date: 20150821
  Serious: No
  Sender: FDA-Public Use
  Company Number: US-009507513-1504USA002506

PATIENT
  Sex: Female

DRUGS (2)
  1. METFORMIN [Concomitant]
     Active Substance: METFORMIN HYDROCHLORIDE
  2. JANUMET [Suspect]
     Active Substance: METFORMIN HYDROCHLORIDE\SITAGLIPTIN PHOSPHATE
     Indication: DIABETES MELLITUS
     Dosage: DOSE 50/500 MG, QD
     Route: 048
     Dates: start: 201503

REACTIONS (3)
  - Wrong technique in drug usage process [Unknown]
  - Headache [Unknown]
  - Dysphagia [Unknown]

NARRATIVE: CASE EVENT DATE: 201503
